FAERS Safety Report 11700074 (Version 1)
Quarter: 2015Q4

REPORT INFORMATION
  Report Type: Spontaneous
  Country: FR (occurrence: FR)
  Receive Date: 20151105
  Receipt Date: 20151105
  Transmission Date: 20160304
  Serious: Yes (Other)
  Sender: FDA-Public Use
  Company Number: FR-FRESENIUS KABI-FK201505627

PATIENT
  Age: 68 Year
  Sex: Male

DRUGS (16)
  1. CARBOPLATIN INJECTION 10MG/ML [Suspect]
     Active Substance: CARBOPLATIN
     Indication: DIFFUSE LARGE B-CELL LYMPHOMA
     Route: 042
     Dates: start: 20150915
  2. DEBRIDAT [Concomitant]
     Active Substance: TRIMEBUTINE MALEATE
  3. SKENAN [Concomitant]
     Active Substance: MORPHINE SULFATE
  4. MABTHERA [Suspect]
     Active Substance: RITUXIMAB
     Indication: DIFFUSE LARGE B-CELL LYMPHOMA
     Route: 042
     Dates: start: 20150914
  5. ACUPAN [Concomitant]
     Active Substance: NEFOPAM HYDROCHLORIDE
     Dates: start: 20150917
  6. ETOPOSIDE TEVA [Suspect]
     Active Substance: ETOPOSIDE
     Indication: DIFFUSE LARGE B-CELL LYMPHOMA
     Route: 042
     Dates: start: 20150915, end: 20150916
  7. CIPROFLOXACIN. [Concomitant]
     Active Substance: CIPROFLOXACIN
  8. QUESTRAN [Concomitant]
     Active Substance: CHOLESTYRAMINE
     Dates: start: 20150917
  9. FORLAX [Concomitant]
     Active Substance: POLYETHYLENE GLYCOL 4000
  10. CILASTATIN [Concomitant]
     Active Substance: CILASTATIN
  11. IFOSFAMIDE EG [Suspect]
     Active Substance: IFOSFAMIDE
     Indication: DIFFUSE LARGE B-CELL LYMPHOMA
     Route: 042
     Dates: start: 20150916
  12. UROMITEXAN [Suspect]
     Active Substance: MESNA
     Indication: DIFFUSE LARGE B-CELL LYMPHOMA
     Route: 042
     Dates: start: 20150916, end: 20150921
  13. XANAX [Concomitant]
     Active Substance: ALPRAZOLAM
     Dates: start: 20150917
  14. ACTISKENAN [Concomitant]
     Active Substance: MORPHINE SULFATE
  15. IMIPENEM [Concomitant]
     Active Substance: IMIPENEM
  16. FASTURTEC [Concomitant]
     Active Substance: RASBURICASE
     Indication: ANTIEMETIC SUPPORTIVE CARE

REACTIONS (1)
  - Encephalopathy [Recovered/Resolved]

NARRATIVE: CASE EVENT DATE: 20150917
